FAERS Safety Report 14826171 (Version 1)
Quarter: 2018Q2

REPORT INFORMATION
  Report Type: Spontaneous
  Country: FR (occurrence: FR)
  Receive Date: 20180430
  Receipt Date: 20180430
  Transmission Date: 20180711
  Serious: Yes (Other)
  Sender: FDA-Public Use
  Company Number: FR-MERCK KGAA-2046817

PATIENT
  Age: 63 Year
  Sex: Female

DRUGS (16)
  1. NOVOTHYROX [Suspect]
     Active Substance: LEVOTHYROXINE SODIUM
     Indication: HYPOTHYROIDISM
     Route: 048
     Dates: start: 201707, end: 20171212
  2. LAMALINE (ACETAMINOPHEN\CAFFEINE\OPIUM) [Concomitant]
     Active Substance: ACETAMINOPHEN\CAFFEINE\OPIUM
     Route: 065
  3. TOCO [Concomitant]
     Active Substance: UNSPECIFIED INGREDIENT
     Route: 065
  4. ZOVIRAX [Concomitant]
     Active Substance: ACYCLOVIR
     Route: 065
  5. OTEZLA [Concomitant]
     Active Substance: APREMILAST
     Route: 065
  6. VOLTARENE (DICLOFENAC DIETHYLAMINE) [Concomitant]
     Active Substance: DICLOFENAC DIETHYLAMINE
     Route: 065
  7. L-THYROXIN HENNING [Suspect]
     Active Substance: LEVOTHYROXINE SODIUM
     Route: 048
     Dates: start: 20171212, end: 20180309
  8. TRANSIPEG [Concomitant]
     Active Substance: POLYETHYLENE GLYCOL 3350
     Route: 065
  9. GAVISCON [Concomitant]
     Active Substance: ALUMINUM HYDROXIDE\MAGNESIUM CARBONATE
     Route: 065
  10. SULFARLEM [Concomitant]
     Active Substance: ANETHOLTRITHION
     Route: 065
  11. UVEDOSE [Concomitant]
     Active Substance: CHOLECALCIFEROL
     Route: 065
  12. OROCAL [Concomitant]
     Route: 065
  13. TARDYFERON [Concomitant]
     Active Substance: FERROUS SULFATE
     Route: 065
  14. SELECTOL [Concomitant]
     Active Substance: CELIPROLOL
     Route: 065
  15. CEBUTID [Concomitant]
     Active Substance: FLURBIPROFEN
     Route: 065
  16. MOPRAL [Concomitant]
     Active Substance: OMEPRAZOLE
     Route: 065

REACTIONS (16)
  - Tinnitus [Unknown]
  - Headache [Unknown]
  - Weight increased [Recovering/Resolving]
  - Blood pressure increased [Unknown]
  - Choking sensation [Unknown]
  - Joint swelling [Not Recovered/Not Resolved]
  - Dyspnoea at rest [Unknown]
  - Muscle spasms [Unknown]
  - Asthenia [Unknown]
  - Nausea [Unknown]
  - Pruritus [Unknown]
  - Hypertension [Unknown]
  - Swelling face [Not Recovered/Not Resolved]
  - Abdominal distension [Unknown]
  - Musculoskeletal stiffness [Recovering/Resolving]
  - Abdominal pain [Unknown]

NARRATIVE: CASE EVENT DATE: 201801
